FAERS Safety Report 17510131 (Version 2)
Quarter: 2021Q4

REPORT INFORMATION
  Report Type: Spontaneous
  Country: US (occurrence: US)
  Receive Date: 20200306
  Receipt Date: 20211123
  Transmission Date: 20220303
  Serious: No
  Sender: FDA-Public Use
  Company Number: US-PFIZER INC-2019171580

PATIENT
  Age: 27 Year
  Sex: Male

DRUGS (2)
  1. XELJANZ [Suspect]
     Active Substance: TOFACITINIB CITRATE
     Indication: Proctitis ulcerative
     Dosage: 10 MG, 2X/DAY
     Route: 048
     Dates: start: 201903
  2. CALCIUM [Concomitant]
     Active Substance: CALCIUM
     Dosage: UNK

REACTIONS (3)
  - Off label use [Unknown]
  - Product dose omission issue [Unknown]
  - Depression [Unknown]

NARRATIVE: CASE EVENT DATE: 20190101
